FAERS Safety Report 11315835 (Version 1)
Quarter: 2015Q3

REPORT INFORMATION
  Report Type: Spontaneous
  Country: US (occurrence: None)
  Receive Date: 20150724
  Receipt Date: 20150724
  Transmission Date: 20151125
  Serious: Yes (Hospitalization)
  Sender: FDA-Public Use
  Company Number: KAD201507-002379

PATIENT
  Age: 78 Year
  Sex: Male
  Weight: 125 kg

DRUGS (11)
  1. LACTULOSE (LACTULOSE) (LACTULOSE) [Concomitant]
  2. ASPIRIN (ACETYLSALICYCLIC ACID) (ACETYLSALICYCLIC ACID) [Concomitant]
  3. SYMBICORT (BUDESONIDE, FORMOTEROL FUMARATE) (BUDESONIDE, FORMOTEROL FUMARATE) [Concomitant]
  4. TRAZODONE [Concomitant]
     Active Substance: TRAZODONE HYDROCHLORIDE
  5. AMIODARONE (AMIODARONE) (AMIODARONE) [Concomitant]
  6. LASIX [Concomitant]
     Active Substance: FUROSEMIDE
  7. SPIRONOLACTONE (SPIRONOLACTONE) (SPIRONOLACTONE) [Concomitant]
     Active Substance: SPIRONOLACTONE
  8. NEURONTIN (GABAPENTIN) (GABAPENTIN) [Concomitant]
  9. ZOLPIDEM [Concomitant]
     Active Substance: ZOLPIDEM\ZOLPIDEM TARTRATE
  10. VIEKIRA PAK [Suspect]
     Active Substance: DASABUVIR\OMBITASVIR\PARITAPREVIR\RITONAVIR
     Indication: HEPATITIS C
     Dosage: TABLET, 24 WEEKS OF TREATMENT, ORAL
     Route: 048
     Dates: start: 20150319
  11. RIBAVIRIN. [Suspect]
     Active Substance: RIBAVIRIN
     Indication: HEPATITIS C
     Dosage: 24 WEEKS OF TREATMENT, ORAL
     Route: 048

REACTIONS (6)
  - Creatinine renal clearance decreased [None]
  - Hepatic cirrhosis [None]
  - Lung disorder [None]
  - Dyspnoea [None]
  - Haemoglobin decreased [None]
  - Ascites [None]

NARRATIVE: CASE EVENT DATE: 20150701
